FAERS Safety Report 19469639 (Version 2)
Quarter: 2021Q3

REPORT INFORMATION
  Report Type: Spontaneous
  Country: US (occurrence: US)
  Receive Date: 20210629
  Receipt Date: 20210705
  Transmission Date: 20211014
  Serious: Yes (Hospitalization, Other)
  Sender: FDA-Public Use
  Company Number: US-SA-2021SA208552

PATIENT
  Age: 73 Year
  Sex: Female

DRUGS (1)
  1. KEVZARA [Suspect]
     Active Substance: SARILUMAB
     Indication: RHEUMATOID ARTHRITIS
     Dosage: 200 MG, QOW
     Route: 058
     Dates: start: 20210528, end: 202106

REACTIONS (3)
  - Rheumatoid arthritis [Recovered/Resolved]
  - Pain [Unknown]
  - Spinal fusion surgery [Not Recovered/Not Resolved]

NARRATIVE: CASE EVENT DATE: 2021
